FAERS Safety Report 9556985 (Version 1)
Quarter: 2013Q3

REPORT INFORMATION
  Report Type: Spontaneous
  Country: US (occurrence: None)
  Receive Date: 20130726
  Receipt Date: 20130726
  Transmission Date: 20140515
  Serious: Yes (Hospitalization)
  Sender: FDA-Public Use
  Company Number: UTC-025396

PATIENT
  Age: 81 Year
  Sex: Female
  Weight: 51.81 kg

DRUGS (4)
  1. REMODULIN [Suspect]
     Indication: PULMONARY ARTERIAL HYPERTENSION
     Dosage: 0.052 UG/KG, 1 IN 1 MIN
     Route: 041
     Dates: start: 20070210
  2. CELEXA [Concomitant]
  3. SINEMET [Concomitant]
  4. COUMADIN [Concomitant]

REACTIONS (1)
  - Device related infection [None]
